FAERS Safety Report 9260184 (Version 1)
Quarter: 2013Q2

REPORT INFORMATION
  Report Type: Spontaneous
  Country: US (occurrence: US)
  Receive Date: 20130429
  Receipt Date: 20130429
  Transmission Date: 20140414
  Serious: No
  Sender: FDA-Public Use
  Company Number: US-PFIZER INC-2013129155

PATIENT
  Age: 78 Year
  Sex: Female
  Weight: 90 kg

DRUGS (2)
  1. ARTHROTEC [Suspect]
     Indication: OSTEOARTHRITIS
     Dosage: 1 DF, 2X/DAY
     Route: 048
  2. DICLOFENAC EPOLAMINE [Suspect]
     Indication: OSTEOARTHRITIS
     Dosage: UNK
     Dates: start: 20130422

REACTIONS (2)
  - Hearing impaired [Unknown]
  - Epigastric discomfort [Unknown]
